FAERS Safety Report 12566850 (Version 4)
Quarter: 2017Q3

REPORT INFORMATION
  Report Type: Spontaneous
  Country: US (occurrence: US)
  Receive Date: 20160718
  Receipt Date: 20170906
  Transmission Date: 20171127
  Serious: Yes (Death)
  Sender: FDA-Public Use
  Company Number: US-BAUSCH-BL-2016-016423

PATIENT
  Age: 77 Year
  Sex: Male

DRUGS (2)
  1. BEXAROTENE. [Suspect]
     Active Substance: BEXAROTENE
     Indication: MYCOSIS FUNGOIDES STAGE II
     Route: 048
  2. ROMIDEPSIN [Suspect]
     Active Substance: ROMIDEPSIN
     Indication: MYCOSIS FUNGOIDES
     Dosage: 14 MG/M2, CYCLICAL
     Route: 065

REACTIONS (1)
  - Malignant neoplasm progression [Fatal]
